FAERS Safety Report 19610008 (Version 3)
Quarter: 2021Q3

REPORT INFORMATION
  Report Type: Report from Study
  Country: AT (occurrence: AT)
  Receive Date: 20210726
  Receipt Date: 20210924
  Transmission Date: 20211014
  Serious: Yes (Hospitalization, Other)
  Sender: FDA-Public Use
  Company Number: AT-PFIZER INC-2021808578

PATIENT
  Age: 79 Year
  Sex: Male
  Weight: 96 kg

DRUGS (22)
  1. CETUXIMAB. [Suspect]
     Active Substance: CETUXIMAB
     Indication: COLORECTAL CANCER
     Dosage: 400 MG/M2, WEEKLY
     Route: 042
     Dates: start: 20210615
  2. NOVALGIN [CAFFEINE;PARACETAMOL;PROPYPHENAZONE] [Concomitant]
     Active Substance: ACETAMINOPHEN\CAFFEINE\PROPYPHENAZONE
     Indication: PROPHYLAXIS
     Dosage: 1 G, TID (3/DAY)
     Route: 042
     Dates: start: 20210717, end: 20210723
  3. GLANDOMED [Concomitant]
     Indication: PROPHYLAXIS
     Dosage: 20 ML, PRN (AS NEEDED)
     Route: 048
     Dates: start: 20201015
  4. LIXIANA [Concomitant]
     Active Substance: EDOXABAN TOSYLATE
     Indication: PULMONARY EMBOLISM
     Dosage: 60 MG DAILY
     Route: 048
     Dates: start: 20201121
  5. LASIX [Concomitant]
     Active Substance: FUROSEMIDE
     Indication: PROPHYLAXIS
     Dosage: 40 MG, PRN
     Route: 042
     Dates: start: 20210712, end: 20210719
  6. PASPERTIN [METOCLOPRAMIDE HYDROCHLORIDE] [Concomitant]
     Active Substance: METOCLOPRAMIDE HYDROCHLORIDE
     Indication: PROPHYLAXIS
     Dosage: 10 MG PRN (AS NEEDED)
     Route: 048
     Dates: start: 20201014
  7. BERODUAL [Concomitant]
     Active Substance: FENOTEROL HYDROBROMIDE\IPRATROPIUM BROMIDE
     Indication: DYSPNOEA
     Dosage: PR2 PUFF PRN (AS NEEDED)
     Route: 048
     Dates: start: 20201106
  8. ZOFRAN [Concomitant]
     Active Substance: ONDANSETRON HYDROCHLORIDE
     Indication: PROPHYLAXIS
     Dosage: 8 MG, PRN (AS NEEDED)
     Route: 048
     Dates: start: 20201018
  9. MUNDISAL [CHOLINE SALICYLATE] [Concomitant]
     Indication: PROPHYLAXIS
     Dosage: 1 APPLICATION THREE TIMES A DAY
     Route: 061
     Dates: start: 20210114
  10. SPIOLTO RESPIMAT [Concomitant]
     Active Substance: OLODATEROL HYDROCHLORIDE\TIOTROPIUM BROMIDE MONOHYDRATE
     Indication: CHRONIC OBSTRUCTIVE PULMONARY DISEASE
     Dosage: 2 HUB DAILY
     Route: 055
     Dates: start: 20210505
  11. RAMIPRIL. [Concomitant]
     Active Substance: RAMIPRIL
     Indication: HYPERTENSION
     Dosage: 5 MG DAILY
     Route: 048
     Dates: start: 20210614
  12. PANTOLOC [Concomitant]
     Active Substance: PANTOPRAZOLE SODIUM
     Indication: PROPHYLAXIS
     Dosage: 40 MG, QD (1/DAY)
     Route: 048
     Dates: start: 20210705, end: 20210713
  13. MAGNOSOLV [Concomitant]
     Active Substance: MAGNESIUM CARBONATE\MAGNESIUM OXIDE
     Indication: PROPHYLAXIS
     Dosage: 1 APPLICATION, PRN
     Route: 048
     Dates: start: 20210712
  14. ENCORAFENIB [Suspect]
     Active Substance: ENCORAFENIB
     Indication: COLORECTAL CANCER
     Dosage: 300 MG/DAY
     Route: 048
     Dates: start: 20210615
  15. NOVALGIN (METAMIZOLE SODIUM) [Concomitant]
     Active Substance: METAMIZOLE SODIUM
     Indication: PROPHYLAXIS
     Dosage: 30 DROP PRN (AS NEEDED)
     Route: 048
     Dates: start: 20201014
  16. LAXOGOL [Concomitant]
     Indication: CONSTIPATION
     Dosage: 1 BAD PRN (AS NEEDED)
     Route: 048
     Dates: start: 20201028
  17. GUTRON [Concomitant]
     Active Substance: MIDODRINE HYDROCHLORIDE
     Indication: POLLAKIURIA
     Dosage: 5 DROPS PRN
     Route: 048
     Dates: start: 20210707, end: 20210718
  18. KCL [Concomitant]
     Active Substance: POTASSIUM CHLORIDE
     Indication: PROPHYLAXIS
     Dosage: 600 MG, QD (1/DAY)
     Route: 048
     Dates: start: 20210712, end: 20210712
  19. TAMSULOSIN [TAMSULOSIN HYDROCHLORIDE] [Concomitant]
     Active Substance: TAMSULOSIN HYDROCHLORIDE
     Indication: POLLAKIURIA
     Dosage: 0.4 MG DAILY
     Route: 048
     Dates: start: 20210217
  20. DRONABINOL. [Concomitant]
     Active Substance: DRONABINOL
     Indication: PROPHYLAXIS
     Dosage: 5 DROP THREE TIMES A DAY
     Route: 048
     Dates: start: 20210527
  21. ANTIFLAT [Concomitant]
     Indication: CONSTIPATION
     Dosage: 1 UNKNOWN PRN (AS NEEDED)
     Route: 048
     Dates: start: 20201201
  22. AMLODIPIN [AMLODIPINE MESILATE] [Concomitant]
     Indication: HYPERTENSION
     Dosage: 10 MG PRN (AS NEEDED)
     Route: 048
     Dates: start: 20201203

REACTIONS (9)
  - Pyrexia [Not Recovered/Not Resolved]
  - Influenza like illness [Not Recovered/Not Resolved]
  - Respiratory failure [Recovering/Resolving]
  - Infection [Not Recovered/Not Resolved]
  - C-reactive protein increased [Not Recovered/Not Resolved]
  - Constipation [Unknown]
  - Ileus [Recovered/Resolved]
  - Fall [Recovered/Resolved]
  - General physical health deterioration [Recovered/Resolved with Sequelae]

NARRATIVE: CASE EVENT DATE: 20210621
